FAERS Safety Report 7892178-2 (Version None)
Quarter: 2011Q4

REPORT INFORMATION
  Report Type: 
  Country: None (occurrence: None)
  Receive Date: 20111104
  Receipt Date: 20111027
  Transmission Date: 20120403
  Serious: Yes (Life-Threatening, Other)
  Sender: FDA-Public Use
  Company Number: JP-ASTRAZENECA-2011SE55273

PATIENT
  Age: 10589 Day
  Sex: Female

DRUGS (8)
  1. LEXOTAN [Concomitant]
     Indication: OVERDOSE
     Dates: start: 20110505
  2. SERTRALINE HYDROCHLORIDE [Concomitant]
     Indication: OVERDOSE
     Dates: start: 20110505
  3. EVE QUICK TABLET [Concomitant]
     Indication: OVERDOSE
     Dates: start: 20110505
  4. ROHYPNOL [Concomitant]
     Indication: OVERDOSE
     Dates: start: 20110505
  5. SEROQUEL [Suspect]
     Indication: DEPRESSION
     Route: 048
     Dates: start: 20110505
  6. IBUPROFEN [Suspect]
     Route: 048
     Dates: start: 20110505
  7. SEROQUEL [Suspect]
     Indication: SCHIZOPHRENIA
     Route: 048
     Dates: start: 20110505
  8. HALCION [Concomitant]
     Indication: OVERDOSE
     Dates: start: 20110505

REACTIONS (2)
  - DISTRIBUTIVE SHOCK [None]
  - MULTIPLE DRUG OVERDOSE [None]
